FAERS Safety Report 25802357 (Version 1)
Quarter: 2025Q3

REPORT INFORMATION
  Report Type: Spontaneous
  Country: QA (occurrence: QA)
  Receive Date: 20250915
  Receipt Date: 20250915
  Transmission Date: 20251021
  Serious: Yes (Hospitalization, Other)
  Sender: GLAND PHARMA LTD
  Company Number: QA-GLANDPHARMA-QA-2025GLNLIT01828

PATIENT
  Age: 8 Year
  Sex: Female

DRUGS (10)
  1. DEXRAZOXANE [Suspect]
     Active Substance: DEXRAZOXANE
     Indication: Chloroma
     Route: 042
  2. CYTARABINE [Suspect]
     Active Substance: CYTARABINE
     Indication: Chloroma
     Route: 037
  3. CYTARABINE [Suspect]
     Active Substance: CYTARABINE
     Route: 042
  4. CYTARABINE [Suspect]
     Active Substance: CYTARABINE
     Route: 037
  5. CYTARABINE [Suspect]
     Active Substance: CYTARABINE
     Route: 042
  6. CYTARABINE [Suspect]
     Active Substance: CYTARABINE
     Route: 037
  7. CYTARABINE [Suspect]
     Active Substance: CYTARABINE
     Route: 042
  8. METHOTREXATE [Suspect]
     Active Substance: METHOTREXATE
     Indication: Chloroma
     Route: 037
  9. MITOXANTRONE [Suspect]
     Active Substance: MITOXANTRONE HYDROCHLORIDE
     Indication: Chloroma
     Route: 042
  10. HYDROCORTISONE SODIUM SUCCINATE [Concomitant]
     Active Substance: HYDROCORTISONE SODIUM SUCCINATE
     Route: 037

REACTIONS (6)
  - Septic shock [Recovered/Resolved]
  - Neutropenia [Recovered/Resolved]
  - Thrombocytopenia [Recovered/Resolved]
  - Pneumocystis jirovecii pneumonia [Recovered/Resolved]
  - Febrile neutropenia [Recovered/Resolved]
  - Product use in unapproved indication [Unknown]
